FAERS Safety Report 16940681 (Version 1)
Quarter: 2019Q4

REPORT INFORMATION
  Report Type: Spontaneous
  Country: JP (occurrence: JP)
  Receive Date: 20191021
  Receipt Date: 20191021
  Transmission Date: 20200122
  Serious: Yes (Other)
  Sender: FDA-Public Use
  Company Number: JP-PFIZER INC-2019452464

PATIENT
  Age: 8 Decade
  Sex: Male

DRUGS (2)
  1. PLETAAL [Suspect]
     Active Substance: CILOSTAZOL
     Dosage: UNK UNK, UNKNOWN FREQ.
     Route: 048
  2. CELECOX [Suspect]
     Active Substance: CELECOXIB
     Dosage: UNK UNK, UNKNOWN FREQ.
     Route: 048

REACTIONS (1)
  - Atrial fibrillation [Unknown]

NARRATIVE: CASE EVENT DATE: 20191003
